FAERS Safety Report 23845633 (Version 3)
Quarter: 2024Q3

REPORT INFORMATION
  Report Type: Report from Study
  Country: CA (occurrence: CA)
  Receive Date: 20240511
  Receipt Date: 20240827
  Transmission Date: 20241017
  Serious: Yes (Other)
  Sender: JOHNSON AND JOHNSON
  Company Number: CA-JNJFOC-20240509883

PATIENT
  Age: 44 Year
  Sex: Male

DRUGS (4)
  1. STELARA [Suspect]
     Active Substance: USTEKINUMAB
     Indication: Crohn^s disease
     Route: 040
     Dates: start: 20240305
  2. STELARA [Suspect]
     Active Substance: USTEKINUMAB
     Route: 058
  3. STELARA [Suspect]
     Active Substance: USTEKINUMAB
     Route: 058
  4. STELARA [Suspect]
     Active Substance: USTEKINUMAB
     Route: 058
     Dates: start: 20240820

REACTIONS (2)
  - Stoma complication [Recovered/Resolved]
  - Pudendal canal syndrome [Not Recovered/Not Resolved]
